FAERS Safety Report 23816615 (Version 1)
Quarter: 2024Q2

REPORT INFORMATION
  Report Type: Spontaneous
  Country: IN (occurrence: IN)
  Receive Date: 20240503
  Receipt Date: 20240503
  Transmission Date: 20240716
  Serious: Yes (Hospitalization)
  Sender: FDA-Public Use
  Company Number: IN-STRIDES ARCOLAB LIMITED-2024SP005170

PATIENT
  Age: 5 Month
  Sex: Female
  Weight: 4.5 kg

DRUGS (2)
  1. ACETAZOLAMIDE [Suspect]
     Active Substance: ACETAZOLAMIDE
     Indication: Hydrocephalus
     Dosage: 0.25 DOSAGE FORM, EVERY 6 HRS (TOOK ONE-FOURTH TABLET 6 HOURLY)
     Route: 065
  2. SODIUM CHLORIDE [Suspect]
     Active Substance: SODIUM CHLORIDE
     Indication: Fluid replacement
     Dosage: 80 MILLILITER
     Route: 042

REACTIONS (4)
  - Respiratory acidosis [Recovered/Resolved]
  - Hyperchloraemia [Recovered/Resolved]
  - Metabolic acidosis [Recovered/Resolved]
  - Off label use [Unknown]
